FAERS Safety Report 6966256-6 (Version None)
Quarter: 2010Q3

REPORT INFORMATION
  Report Type: 
  Country: None (occurrence: None)
  Receive Date: 20100903
  Receipt Date: 20100826
  Transmission Date: 20110219
  Serious: No
  Sender: FDA-Public Use
  Company Number: BR-US-EMD SERONO, INC.-7016363

PATIENT
  Sex: Female

DRUGS (2)
  1. REBIF [Suspect]
     Indication: RELAPSING-REMITTING MULTIPLE SCLEROSIS
     Route: 058
     Dates: start: 20100501
  2. ACETAMINOPHEN [Concomitant]

REACTIONS (3)
  - INJECTION SITE ERYTHEMA [None]
  - MONOPARESIS [None]
  - OPTIC NEURITIS [None]
